FAERS Safety Report 19101405 (Version 2)
Quarter: 2021Q2

REPORT INFORMATION
  Report Type: Spontaneous
  Country: IT (occurrence: IT)
  Receive Date: 20210407
  Receipt Date: 20210415
  Transmission Date: 20210717
  Serious: Yes (Other)
  Sender: FDA-Public Use
  Company Number: IT-TEVA-2021-IT-1897791

PATIENT
  Age: 74 Year
  Sex: Female
  Weight: 43 kg

DRUGS (1)
  1. ESCITALOPRAM OXALATE. [Suspect]
     Active Substance: ESCITALOPRAM OXALATE
     Indication: DEPRESSION
     Dosage: 4 GTT
     Route: 048
     Dates: start: 20210311, end: 20210320

REACTIONS (8)
  - Constipation [Recovering/Resolving]
  - Diplopia [Recovering/Resolving]
  - Migraine [Recovering/Resolving]
  - Abdominal pain [Recovering/Resolving]
  - Eye pain [Recovering/Resolving]
  - Nausea [Recovering/Resolving]
  - Vertigo [Recovering/Resolving]
  - Vision blurred [Recovering/Resolving]

NARRATIVE: CASE EVENT DATE: 20210317
